FAERS Safety Report 4984323-3 (Version None)
Quarter: 2006Q2

REPORT INFORMATION
  Report Type: 
  Country: None (occurrence: None)
  Receive Date: 20060427
  Receipt Date: 20060217
  Transmission Date: 20061013
  Serious: Yes (Death, Hospitalization)
  Sender: FDA-Public Use
  Company Number: DE-AVENTIS-200610487DE

PATIENT
  Age: 73 Year
  Sex: Male
  Weight: 67 kg

DRUGS (1)
  1. TAXOTERE [Suspect]
     Indication: NON-SMALL CELL LUNG CANCER
     Route: 042
     Dates: start: 20050422, end: 20050603

REACTIONS (5)
  - ASTHENIA [None]
  - DYSPHAGIA [None]
  - INFECTION [None]
  - PULMONARY EMBOLISM [None]
  - TREMOR [None]
